FAERS Safety Report 8026988-8 (Version None)
Quarter: 2012Q1

REPORT INFORMATION
  Report Type: 
  Country: None (occurrence: None)
  Receive Date: 20120106
  Receipt Date: 20120104
  Transmission Date: 20120608
  Serious: Yes (Life-Threatening, Hospitalization, Other)
  Sender: FDA-Public Use
  Company Number: GB-PFIZER INC-2011289190

PATIENT
  Age: 47 Year
  Sex: Female
  Weight: 65 kg

DRUGS (3)
  1. LEVOTHYROXINE [Concomitant]
     Indication: HYPOTHYROIDISM
     Dosage: 175 MG, UNK
     Route: 048
     Dates: start: 20041011
  2. VARENICLINE TARTRATE [Suspect]
     Indication: SMOKING CESSATION THERAPY
     Dosage: 1 MG, 2X/DAY
     Route: 048
     Dates: start: 20110909, end: 20111010
  3. FLUOXETINE [Concomitant]
     Indication: DEPRESSION
     Dosage: 60 MG, UNK
     Route: 048
     Dates: start: 20060515

REACTIONS (7)
  - ABNORMAL BEHAVIOUR [None]
  - STERNAL FRACTURE [None]
  - AGITATION [None]
  - SUICIDE ATTEMPT [None]
  - SUICIDAL IDEATION [None]
  - ROAD TRAFFIC ACCIDENT [None]
  - DEPRESSION [None]
